FAERS Safety Report 6699598-2 (Version None)
Quarter: 2010Q2

REPORT INFORMATION
  Report Type: 
  Country: None (occurrence: None)
  Receive Date: 20100428
  Receipt Date: 20100419
  Transmission Date: 20101027
  Serious: Yes (Hospitalization)
  Sender: FDA-Public Use
  Company Number: US-BIOGENIDEC-2010BI013223

PATIENT
  Age: 36 Year
  Sex: Male
  Weight: 92 kg

DRUGS (1)
  1. TYSABRI [Suspect]
     Indication: MULTIPLE SCLEROSIS
     Route: 042
     Dates: start: 20070319

REACTIONS (4)
  - MULTIPLE SCLEROSIS [None]
  - PAIN [None]
  - RASH [None]
  - ROAD TRAFFIC ACCIDENT [None]
